FAERS Safety Report 19804584 (Version 2)
Quarter: 2021Q4

REPORT INFORMATION
  Report Type: Spontaneous
  Country: US (occurrence: US)
  Receive Date: 20210908
  Receipt Date: 20211221
  Transmission Date: 20220303
  Serious: No
  Sender: FDA-Public Use
  Company Number: US-PFIZER INC-2020315691

PATIENT
  Age: 64 Year
  Sex: Male
  Weight: 85.02 kg

DRUGS (1)
  1. LYRICA [Suspect]
     Active Substance: PREGABALIN
     Indication: Pain
     Dosage: UNK
     Dates: start: 20200819

REACTIONS (2)
  - Drug ineffective [Unknown]
  - Macule [Unknown]
